FAERS Safety Report 8001583-5 (Version None)
Quarter: 2011Q4

REPORT INFORMATION
  Report Type: 
  Country: None (occurrence: None)
  Receive Date: 20111222
  Receipt Date: 20111219
  Transmission Date: 20120403
  Serious: Yes (Hospitalization)
  Sender: FDA-Public Use
  Company Number: FR-ROCHE-1021509

PATIENT
  Sex: Female
  Weight: 73 kg

DRUGS (7)
  1. VEMURAFENIB [Suspect]
     Indication: MALIGNANT MELANOMA
     Route: 048
     Dates: start: 20111021, end: 20111102
  2. NEO-MERCAZOLE TAB [Concomitant]
  3. METFORMIN HCL [Concomitant]
     Dosage: 2 TABLETS DAILY
  4. LANTUS [Concomitant]
  5. VEMURAFENIB [Suspect]
     Dates: start: 20111119
  6. METFORMIN HCL [Concomitant]
     Dosage: STOPPED AND REPLACED WITH INSULIN
  7. ATACAND [Concomitant]

REACTIONS (3)
  - DRUG ERUPTION [None]
  - LUNG INFECTION [None]
  - RASH MACULO-PAPULAR [None]
